FAERS Safety Report 25460412 (Version 1)
Quarter: 2025Q2

REPORT INFORMATION
  Report Type: Spontaneous
  Country: US (occurrence: None)
  Receive Date: 20250619
  Receipt Date: 20250619
  Transmission Date: 20250717
  Serious: Yes (Hospitalization)
  Sender: FDA-CTU
  Company Number: None

PATIENT
  Age: 81 Year
  Sex: Female

DRUGS (1)
  1. ZOLEDRONIC [Suspect]
     Active Substance: ZOLEDRONIC ACID
     Route: 042
     Dates: start: 202407, end: 202407

REACTIONS (2)
  - Acute kidney injury [None]
  - Therapy cessation [None]

NARRATIVE: CASE EVENT DATE: 20240724
